FAERS Safety Report 21071352 (Version 1)
Quarter: 2022Q3

REPORT INFORMATION
  Report Type: Report from Study
  Country: US (occurrence: US)
  Receive Date: 20220712
  Receipt Date: 20220712
  Transmission Date: 20221027
  Serious: Yes (Other)
  Sender: FDA-Public Use
  Company Number: US-Amarin Pharma, Inc.-2022AMR001159

PATIENT
  Age: 61 Year
  Sex: Male

DRUGS (1)
  1. VASCEPA [Suspect]
     Active Substance: ICOSAPENT ETHYL
     Indication: Product used for unknown indication
     Route: 048
     Dates: start: 20220312, end: 20220617

REACTIONS (4)
  - Neuropathy peripheral [Recovering/Resolving]
  - Chest pain [Recovering/Resolving]
  - Joint swelling [Recovering/Resolving]
  - Peripheral swelling [Recovering/Resolving]

NARRATIVE: CASE EVENT DATE: 20220601
